FAERS Safety Report 9268416 (Version 2)
Quarter: 2013Q2

REPORT INFORMATION
  Report Type: Spontaneous
  Country: US (occurrence: US)
  Receive Date: 20130502
  Receipt Date: 20130612
  Transmission Date: 20140414
  Serious: Yes (Hospitalization)
  Sender: FDA-Public Use
  Company Number: US-B.I. PHARMACEUTICALS,INC./RIDGEFIELD-2013-BI-12169BP

PATIENT
  Age: 64 Year
  Sex: Male
  Weight: 102.06 kg

DRUGS (7)
  1. PRADAXA [Suspect]
     Indication: ANTICOAGULANT THERAPY
     Dosage: 300 MG
     Dates: start: 20110301, end: 20110928
  2. ALLOPURINOL [Concomitant]
     Dosage: 100 MG
  3. TORSEMIDE [Concomitant]
  4. SYMBICORT [Concomitant]
  5. ALDACTONE [Concomitant]
  6. LOVASTATIN [Concomitant]
     Dosage: 20 MG
  7. BYSTOLIC [Concomitant]

REACTIONS (1)
  - Gastrointestinal haemorrhage [Unknown]
